FAERS Safety Report 7421576-6 (Version None)
Quarter: 2011Q1

REPORT INFORMATION
  Report Type: 
  Country: None (occurrence: None)
  Receive Date: 20110302
  Receipt Date: 20110112
  Transmission Date: 20110831
  Serious: No
  Sender: FDA-Public Use
  Company Number: 022261

PATIENT
  Sex: Female

DRUGS (1)
  1. CIMZIA [Suspect]
     Indication: CROHN'S DISEASE
     Dosage: SUBCUTANEOUS
     Route: 058
     Dates: start: 20100817

REACTIONS (5)
  - TOOTH DISORDER [None]
  - GINGIVAL DISORDER [None]
  - RASH [None]
  - LOCAL SWELLING [None]
  - FATIGUE [None]
